FAERS Safety Report 6256912-X (Version None)
Quarter: 2009Q3

REPORT INFORMATION
  Report Type: 
  Country: None (occurrence: None)
  Receive Date: 20090706
  Receipt Date: 20090630
  Transmission Date: 20100115
  Serious: Yes (Death)
  Sender: FDA-Public Use
  Company Number: PHMT2007CA02179

PATIENT
  Sex: Female

DRUGS (1)
  1. EXJADE [Suspect]
     Indication: MYELODYSPLASTIC SYNDROME
     Dosage: 1125 MG
     Route: 048
     Dates: start: 20070106

REACTIONS (3)
  - BRONCHIECTASIS [None]
  - PULMONARY FUNCTION TEST DECREASED [None]
  - RESPIRATORY FAILURE [None]
